FAERS Safety Report 5712776-1 (Version None)
Quarter: 2008Q2

REPORT INFORMATION
  Report Type: 
  Country: None (occurrence: None)
  Receive Date: 20080421
  Receipt Date: 20080421
  Transmission Date: 20081010
  Serious: No
  Sender: FDA-Public Use
  Company Number: None

PATIENT
  Sex: Male
  Weight: 91.8 kg

DRUGS (2)
  1. TAXOTERE [Suspect]
     Dosage: 160 MG
  2. PREDNISONE [Suspect]
     Dosage: 210 MG

REACTIONS (1)
  - NEUTROPHIL COUNT DECREASED [None]
